FAERS Safety Report 6250364-1 (Version None)
Quarter: 2009Q2

REPORT INFORMATION
  Report Type: 
  Country: None (occurrence: None)
  Receive Date: 20090630
  Receipt Date: 20090617
  Transmission Date: 20091009
  Serious: Yes (Other)
  Sender: FDA-Public Use
  Company Number: PHHY2009CL24539

PATIENT
  Sex: Female

DRUGS (1)
  1. TORECAN [Suspect]

REACTIONS (1)
  - FACIAL PALSY [None]
